FAERS Safety Report 4474296-4 (Version None)
Quarter: 2004Q4

REPORT INFORMATION
  Report Type: 
  Country: None (occurrence: None)
  Receive Date: 20041012
  Receipt Date: 20041012
  Transmission Date: 20050328
  Serious: Yes (Other)
  Sender: FDA-Public Use
  Company Number: None

PATIENT
  Age: 38 Year
  Sex: Female
  Weight: 60.782 kg

DRUGS (2)
  1. FAMVIR [Suspect]
     Indication: HERPES SIMPLEX
     Dosage: 500 MG X 1 DOSE
     Dates: start: 20040902
  2. SEROQUEL [Concomitant]

REACTIONS (6)
  - ACNE [None]
  - DRY SKIN [None]
  - PHOTOSENSITIVITY REACTION [None]
  - RASH [None]
  - SKIN DISORDER [None]
  - STRESS SYMPTOMS [None]
